FAERS Safety Report 8622489-4 (Version None)
Quarter: 2012Q3

REPORT INFORMATION
  Report Type: 
  Country: None (occurrence: None)
  Receive Date: 20120827
  Receipt Date: 20120821
  Transmission Date: 20120928
  Serious: No
  Sender: FDA-Public Use
  Company Number: US-PFIZER INC-2012205131

PATIENT
  Sex: Female

DRUGS (1)
  1. LORATADINE AND PSEUDOEPHEDRINE SULFATE [Suspect]
     Indication: PRURITUS
     Dosage: TWO ORAL TABLET, ONCE A DAY
     Route: 048
     Dates: start: 20120820

REACTIONS (1)
  - INSOMNIA [None]
